FAERS Safety Report 6327284-7 (Version None)
Quarter: 2009Q3

REPORT INFORMATION
  Report Type: 
  Country: None (occurrence: None)
  Receive Date: 20090825
  Receipt Date: 20090819
  Transmission Date: 20100115
  Serious: Yes (Other)
  Sender: FDA-Public Use
  Company Number: SE-MERCK-0711SWE00001

PATIENT
  Age: 73 Year
  Sex: Male

DRUGS (1)
  1. PROSCAR [Suspect]
     Indication: PROSTATOMEGALY
     Route: 048

REACTIONS (2)
  - BREAST CANCER [None]
  - GYNAECOMASTIA [None]
